FAERS Safety Report 21104515 (Version 1)
Quarter: 2022Q3

REPORT INFORMATION
  Report Type: Spontaneous
  Country: US (occurrence: None)
  Receive Date: 20220719
  Receipt Date: 20220719
  Transmission Date: 20221027
  Serious: Yes (Hospitalization)
  Sender: FDA-Public Use
  Company Number: None

PATIENT
  Sex: Male

DRUGS (13)
  1. SPRYCEL [Suspect]
     Active Substance: DASATINIB
     Indication: Liver function test abnormal
     Dosage: FREQUENCY : DAILY;?
     Route: 048
     Dates: start: 20210908
  2. SPRYCEL [Suspect]
     Active Substance: DASATINIB
     Dosage: FREQUENCY : DAILY;?
     Route: 048
  3. ATORVASTATIN [Concomitant]
     Active Substance: ATORVASTATIN
  4. CARVEDILOL [Concomitant]
     Active Substance: CARVEDILOL
  5. FUROSEMIDE [Concomitant]
     Active Substance: FUROSEMIDE
  6. HYDROXYZINE HYDROCHLORIDE [Concomitant]
     Active Substance: HYDROXYZINE HYDROCHLORIDE
  7. INDOMETHACIN [Concomitant]
     Active Substance: INDOMETHACIN
  8. ONDANSETRON [Concomitant]
     Active Substance: ONDANSETRON
  9. OXYCODONE [Concomitant]
     Active Substance: OXYCODONE
  10. PREDNISONE [Concomitant]
     Active Substance: PREDNISONE
  11. PROMETHAZINE HYDROCHLORIDE [Concomitant]
     Active Substance: PROMETHAZINE HYDROCHLORIDE
  12. SPRYCEL [Concomitant]
     Active Substance: DASATINIB
  13. TRAZODONE [Concomitant]
     Active Substance: TRAZODONE HYDROCHLORIDE

REACTIONS (1)
  - Dyspnoea [None]
